FAERS Safety Report 5043119-7 (Version None)
Quarter: 2006Q2

REPORT INFORMATION
  Report Type: 
  Country: None (occurrence: None)
  Receive Date: 20060628
  Receipt Date: 20060622
  Transmission Date: 20061013
  Serious: Yes (Death)
  Sender: FDA-Public Use
  Company Number: 200610754BNE

PATIENT
  Sex: Male

DRUGS (22)
  1. ASPIRIN [Suspect]
  2. ATORVASTATIN CALCIUM [Suspect]
  3. BECLOMETHASONE (BECLOMETASONE DIPROPIONATE) [Suspect]
     Dosage: RESPIRATORY (INHALATION)
     Route: 055
  4. COMBIVENT METERED AEROSOL [Suspect]
     Indication: CHRONIC OBSTRUCTIVE PULMONARY DISEASE
     Dosage: RESPIRATORY (INHALATION)
     Route: 055
     Dates: start: 20030617, end: 20040513
  5. DEXAMETHASONE (DEXAMETHASONE [DEXAMETHASONE]) [Suspect]
  6. DILTIAZEM HCL [Suspect]
  7. DOSULEPIN [Suspect]
  8. FRUMIL [Suspect]
  9. FUROSEMIDE (FUROSEMIDE [FUROSEMIDE]) [Suspect]
  10. GAVISCON [Suspect]
  11. LACTULOSE [Suspect]
  12. LANSOPRAZOLE [Suspect]
  13. METOCLOPRAMIDE [Suspect]
  14. NITROLINGUAL (GLYCERYL TRINITRATE) [Suspect]
  15. NOZINAN (LEVOMEPROMAZINE) [Suspect]
  16. OXYCODONE HCL [Suspect]
  17. OXYGEN [Suspect]
     Dosage: RESPIRATORY (INHALATION)
     Route: 055
  18. SALBUTAMOL [Suspect]
     Dosage: RESPIRATORY (INHALATION)
     Route: 055
  19. SPIRIVA [Suspect]
     Dosage: 18 UG, TOTAL DAILY, RESPIRATORY (INHALATION)
     Route: 055
     Dates: start: 20030617, end: 20040701
  20. SPIRONOLACTONE [Suspect]
  21. SYMBICORT [Suspect]
     Dosage: RESPIRATORY (INHALATION)
     Route: 055
  22. TEMAZEPAM [Suspect]

REACTIONS (3)
  - DISEASE PROGRESSION [None]
  - LUNG NEOPLASM MALIGNANT [None]
  - MESOTHELIOMA [None]
